FAERS Safety Report 4832414-X (Version None)
Quarter: 2005Q4

REPORT INFORMATION
  Report Type: 
  Country: None (occurrence: None)
  Receive Date: 20051117
  Receipt Date: 20051101
  Transmission Date: 20060501
  Serious: Yes (Hospitalization)
  Sender: FDA-Public Use
  Company Number: DSA_27344_2005

PATIENT
  Age: 55 Year
  Sex: Male
  Weight: 117.9352 kg

DRUGS (8)
  1. CARDIZEM LA [Suspect]
     Indication: HYPERTENSION
     Dosage: 240 MG Q DAY PO
     Route: 048
     Dates: start: 20050701, end: 20051031
  2. COZAAR [Suspect]
     Indication: HYPERTENSION
     Dosage: 100 MG Q DAY PO
     Route: 048
     Dates: start: 20030101, end: 20051031
  3. LORAZEPAM [Concomitant]
  4. TOPROL-XL [Suspect]
     Dosage: DF
     Dates: start: 20050101
  5. CARDIZEM [Suspect]
     Indication: HYPERTENSION
     Dosage: DF IV
     Route: 042
     Dates: start: 20050701, end: 20050101
  6. DILTIAZEM [Suspect]
     Indication: HYPERTENSION
     Dosage: DF
     Dates: start: 20050101, end: 20050101
  7. CARDIZEM LA [Suspect]
     Indication: HYPERTENSION
     Dosage: 300 MG Q DAY PO
     Route: 048
     Dates: start: 20050101, end: 20050101
  8. CARDIZEM LA [Suspect]
     Indication: HYPERTENSION
     Dosage: 240 MG Q DAY PO
     Route: 048
     Dates: start: 20050101, end: 20051031

REACTIONS (21)
  - ABDOMINAL PAIN [None]
  - ANXIETY [None]
  - BACK PAIN [None]
  - BLOOD PRESSURE INCREASED [None]
  - CHEST PAIN [None]
  - CHILLS [None]
  - CHROMATURIA [None]
  - CONSTIPATION [None]
  - DIARRHOEA [None]
  - DRUG INTOLERANCE [None]
  - EYE DISORDER [None]
  - FLATULENCE [None]
  - HEART RATE INCREASED [None]
  - INSOMNIA [None]
  - JAUNDICE [None]
  - MUSCLE SPASMS [None]
  - MYALGIA [None]
  - OCULAR ICTERUS [None]
  - PALPITATIONS [None]
  - POLLAKIURIA [None]
  - VISION BLURRED [None]
